FAERS Safety Report 6652352-X (Version None)
Quarter: 2010Q1

REPORT INFORMATION
  Report Type: 
  Country: None (occurrence: None)
  Receive Date: 20100325
  Receipt Date: 20091013
  Transmission Date: 20100710
  Serious: Yes (Death, Hospitalization)
  Sender: FDA-Public Use
  Company Number: PHHY2009TW61016

PATIENT

DRUGS (1)
  1. EXJADE [Suspect]

REACTIONS (3)
  - ABDOMINAL INFECTION [None]
  - DEATH [None]
  - PYREXIA [None]
